FAERS Safety Report 4376567-9 (Version None)
Quarter: 2004Q2

REPORT INFORMATION
  Report Type: 
  Country: None (occurrence: None)
  Receive Date: 20040614
  Receipt Date: 20040601
  Transmission Date: 20050107
  Serious: Yes (Life-Threatening, Hospitalization)
  Sender: FDA-Public Use
  Company Number: JP-JNJFOC-20040504234

PATIENT
  Sex: Male
  Weight: 62 kg

DRUGS (10)
  1. REMICADE [Suspect]
     Route: 041
     Dates: start: 20031021
  2. REMICADE [Suspect]
     Route: 041
     Dates: start: 20031021
  3. REMICADE [Suspect]
     Route: 041
     Dates: start: 20031021
  4. REMICADE [Suspect]
     Route: 041
     Dates: start: 20031021
  5. REMICADE [Suspect]
     Indication: RHEUMATOID ARTHRITIS
     Route: 041
     Dates: start: 20031021
  6. RHEUMATREX [Suspect]
     Route: 049
     Dates: start: 19990220, end: 20040513
  7. RHEUMATREX [Suspect]
     Route: 049
     Dates: start: 19990220, end: 20040513
  8. RHEUMATREX [Suspect]
     Route: 049
     Dates: start: 19990220, end: 20040513
  9. RHEUMATREX [Suspect]
     Indication: DRUG USE FOR UNKNOWN INDICATION
     Route: 049
     Dates: start: 19990220, end: 20040513
  10. INH [Concomitant]
     Indication: PROPHYLAXIS
     Route: 065
     Dates: start: 20040324

REACTIONS (3)
  - DRUG INTERACTION [None]
  - PNEUMOCYSTIS CARINII INFECTION [None]
  - PNEUMONIA [None]
